FAERS Safety Report 4844540-X (Version None)
Quarter: 2005Q4

REPORT INFORMATION
  Report Type: 
  Country: None (occurrence: None)
  Receive Date: 20051130
  Receipt Date: 20051130
  Transmission Date: 20060501
  Serious: Yes (Hospitalization)
  Sender: FDA-Public Use
  Company Number: None

PATIENT
  Sex: Male
  Weight: 74.4 kg

DRUGS (2)
  1. GEMCITABINE [Suspect]
     Indication: SARCOMA
     Dosage: 900MG/M2  3WKS-DAY 1 AND 8 IV
     Route: 042
     Dates: start: 20051018, end: 20051025
  2. DOCETAXEL [Suspect]
     Dosage: 100MG/M2  DAY 8 EVERY 3 WKS IV
     Route: 042
     Dates: start: 20051025, end: 20051025

REACTIONS (7)
  - BRONCHOPULMONARY ASPERGILLOSIS [None]
  - DEHYDRATION [None]
  - NAUSEA [None]
  - ORTHOSTATIC HYPOTENSION [None]
  - PAIN [None]
  - RASH [None]
  - VOMITING [None]
